FAERS Safety Report 6231486-8 (Version None)
Quarter: 2009Q2

REPORT INFORMATION
  Report Type: 
  Country: None (occurrence: None)
  Receive Date: 20090616
  Receipt Date: 20090608
  Transmission Date: 20091009
  Serious: Yes (Hospitalization)
  Sender: FDA-Public Use
  Company Number: A0789381A

PATIENT
  Age: 88 Year
  Sex: Female

DRUGS (2)
  1. COREG [Suspect]
     Indication: HYPERTENSION
     Route: 048
     Dates: start: 20090501
  2. UNSPECIFIED MEDICATION [Concomitant]

REACTIONS (3)
  - HERPES ZOSTER [None]
  - HYPERSENSITIVITY [None]
  - RASH [None]
